FAERS Safety Report 7783845-X (Version None)
Quarter: 2011Q3

REPORT INFORMATION
  Report Type: 
  Country: None (occurrence: None)
  Receive Date: 20110928
  Receipt Date: 20110806
  Transmission Date: 20111222
  Serious: Yes (Other)
  Sender: FDA-Public Use
  Company Number: IN-GLAXOSMITHKLINE-A0946078A

PATIENT
  Sex: Male

DRUGS (2)
  1. UNKNOWN [Concomitant]
  2. NICORETTE [Suspect]
     Route: 002

REACTIONS (3)
  - CARDIAC DISORDER [None]
  - ANGINA PECTORIS [None]
  - DRUG INEFFECTIVE [None]
